FAERS Safety Report 7710992-0 (Version None)
Quarter: 2011Q3

REPORT INFORMATION
  Report Type: 
  Country: None (occurrence: None)
  Receive Date: 20110825
  Receipt Date: 20110816
  Transmission Date: 20111222
  Serious: Yes (Hospitalization)
  Sender: FDA-Public Use
  Company Number: US-ASTRAZENECA-2011SE47747

PATIENT
  Age: 47 Year
  Sex: Female

DRUGS (4)
  1. TOPROL-XL [Suspect]
     Route: 048
  2. SYMBICORT [Suspect]
     Route: 055
  3. METOPROLOL TARTRATE [Concomitant]
  4. TOPROL-XL [Suspect]
     Route: 048

REACTIONS (2)
  - LIMB DISCOMFORT [None]
  - MIGRAINE [None]
